FAERS Safety Report 7200420-6 (Version None)
Quarter: 2010Q4

REPORT INFORMATION
  Report Type: 
  Country: None (occurrence: None)
  Receive Date: 20101214
  Receipt Date: 20101206
  Transmission Date: 20110411
  Serious: Yes (Other)
  Sender: FDA-Public Use
  Company Number: JHP201000370

PATIENT

DRUGS (1)
  1. KETALAR [Suspect]

REACTIONS (1)
  - PULMONARY HYPERTENSIVE CRISIS [None]
